FAERS Safety Report 6228587-7 (Version None)
Quarter: 2009Q2

REPORT INFORMATION
  Report Type: 
  Country: None (occurrence: None)
  Receive Date: 20090612
  Receipt Date: 20090604
  Transmission Date: 20091009
  Serious: Yes (Other)
  Sender: FDA-Public Use
  Company Number: CH-ABBOTT-09P-151-0578012-00

PATIENT
  Age: 61 Year
  Sex: Female

DRUGS (10)
  1. KALETRA [Suspect]
     Indication: ASYMPTOMATIC HIV INFECTION
     Dosage: 133.2MG/33.3
     Route: 048
  2. KALETRA [Suspect]
     Dosage: 533.2/133.3MG
     Route: 048
  3. CINACALCET [Interacting]
     Indication: HYPERPARATHYROIDISM
     Route: 048
     Dates: start: 20090101, end: 20090101
  4. CINACALCET [Interacting]
     Indication: PARATHYROID DISORDER
  5. SAQUINAVIR MESILATE [Suspect]
     Indication: ASYMPTOMATIC HIV INFECTION
     Route: 048
  6. 3TC [Concomitant]
     Indication: DRUG USE FOR UNKNOWN INDICATION
     Route: 048
  7. MOXIFLOXACIN HCL [Concomitant]
     Indication: DRUG USE FOR UNKNOWN INDICATION
     Dates: start: 20090101
  8. ERYTHROPOIETIN HUMAN [Concomitant]
     Indication: DRUG USE FOR UNKNOWN INDICATION
  9. VENOFER [Concomitant]
     Indication: DRUG USE FOR UNKNOWN INDICATION
  10. CALCITRIOL [Concomitant]
     Indication: DRUG USE FOR UNKNOWN INDICATION

REACTIONS (4)
  - DRUG INTERACTION [None]
  - DYSPNOEA [None]
  - HYPERSENSITIVITY [None]
  - LOCALISED OEDEMA [None]
